FAERS Safety Report 7635209-7 (Version None)
Quarter: 2011Q3

REPORT INFORMATION
  Report Type: 
  Country: None (occurrence: None)
  Receive Date: 20110718
  Receipt Date: 20110706
  Transmission Date: 20111222
  Serious: Yes (Hospitalization, Other)
  Sender: FDA-Public Use
  Company Number: JPI-P-011884

PATIENT
  Age: 39 Year
  Sex: Female
  Weight: 105.2345 kg

DRUGS (25)
  1. MOMETASONE FUROATE [Concomitant]
  2. MONTELUKAST SODIUM [Concomitant]
  3. BUSPIRONE HCL [Concomitant]
  4. DEXTROAMPHETAMIN CR [Concomitant]
  5. ALBUTEROL SULFATE AUTOHALER [Concomitant]
  6. VITAMIN D [Concomitant]
  7. CETIRIZINE HCL [Concomitant]
  8. LORAZEPAM [Concomitant]
  9. ONDANSETRON [Concomitant]
  10. SIMVASTATIN [Concomitant]
  11. TIZANIDINE HCL [Concomitant]
  12. BENZTROPINE MESYLATE [Concomitant]
  13. DIHYDROERGOTAMINE [Concomitant]
  14. FENTANYL [Concomitant]
  15. KETOCONAZOLE [Concomitant]
  16. PIMECROLIMUS [Concomitant]
  17. LIDOCAINE [Concomitant]
  18. XYREM [Suspect]
     Indication: CATAPLEXY
     Dosage: 4.5 GM (2.25 GM, 2 IN 1 D), ORAL 5 GM (2.5 GM, 2 IN 1 D), ORAL 9 GM (4.5 GM, 2 IN 1 D), ORAL
     Route: 048
     Dates: start: 20070901, end: 20071001
  19. XYREM [Suspect]
     Indication: CATAPLEXY
     Dosage: 4.5 GM (2.25 GM, 2 IN 1 D), ORAL 5 GM (2.5 GM, 2 IN 1 D), ORAL 9 GM (4.5 GM, 2 IN 1 D), ORAL
     Route: 048
     Dates: start: 20071001, end: 20080101
  20. XYREM [Suspect]
     Indication: CATAPLEXY
     Dosage: 4.5 GM (2.25 GM, 2 IN 1 D), ORAL 5 GM (2.5 GM, 2 IN 1 D), ORAL 9 GM (4.5 GM, 2 IN 1 D), ORAL
     Route: 048
     Dates: start: 20090201, end: 20090101
  21. XYREM [Suspect]
     Indication: CATAPLEXY
     Dosage: 4.5 GM (2.25 GM, 2 IN 1 D), ORAL 5 GM (2.5 GM, 2 IN 1 D), ORAL 9 GM (4.5 GM, 2 IN 1 D), ORAL
     Route: 048
     Dates: start: 20080101, end: 20080101
  22. XYREM [Suspect]
     Indication: CATAPLEXY
     Dosage: 4.5 GM (2.25 GM, 2 IN 1 D), ORAL 5 GM (2.5 GM, 2 IN 1 D), ORAL 9 GM (4.5 GM, 2 IN 1 D), ORAL
     Route: 048
     Dates: start: 20090101, end: 20110511
  23. XYREM [Suspect]
     Indication: CATAPLEXY
     Dosage: 4.5 GM (2.25 GM, 2 IN 1 D), ORAL 5 GM (2.5 GM, 2 IN 1 D), ORAL 9 GM (4.5 GM, 2 IN 1 D), ORAL
     Route: 048
     Dates: start: 20080101, end: 20090201
  24. CLONAZEPAM [Concomitant]
  25. DICLOFENAC SODIUM [Concomitant]

REACTIONS (12)
  - ILL-DEFINED DISORDER [None]
  - ARTHROPATHY [None]
  - HYPOXIA [None]
  - HYPOTENSION [None]
  - BRADYCARDIA [None]
  - DISSOCIATIVE IDENTITY DISORDER [None]
  - MENTAL DISORDER [None]
  - PAIN [None]
  - POLYCYSTIC OVARIES [None]
  - POST-TRAUMATIC STRESS DISORDER [None]
  - COMPLETED SUICIDE [None]
  - INITIAL INSOMNIA [None]
